FAERS Safety Report 18105279 (Version 2)
Quarter: 2020Q3

REPORT INFORMATION
  Report Type: Spontaneous
  Country: US (occurrence: US)
  Receive Date: 20200803
  Receipt Date: 20200805
  Transmission Date: 20201103
  Serious: No
  Sender: FDA-Public Use
  Company Number: US-PFIZER INC-2020292689

PATIENT
  Age: 85 Year
  Sex: Female
  Weight: 67.13 kg

DRUGS (1)
  1. PREMARIN [Suspect]
     Active Substance: ESTROGENS, CONJUGATED
     Indication: VULVOVAGINAL DRYNESS
     Dosage: 0.625MG/G, A FINGERTIP FULL APPLIED ONCE A WEEK OR TWO WEEKS
     Route: 067

REACTIONS (5)
  - Memory impairment [Unknown]
  - Intentional product misuse [Unknown]
  - Off label use [Unknown]
  - Vaginal haemorrhage [Unknown]
  - Body height decreased [Unknown]
